FAERS Safety Report 7088101-3 (Version None)
Quarter: 2010Q4

REPORT INFORMATION
  Report Type: 
  Country: None (occurrence: None)
  Receive Date: 20101026
  Receipt Date: 20101008
  Transmission Date: 20110411
  Serious: No
  Sender: FDA-Public Use
  Company Number: 2010-00878

PATIENT
  Sex: Male

DRUGS (1)
  1. ZICAM COLD REMEDY GEL SWABS [Suspect]
     Indication: INFLUENZA LIKE ILLNESS
     Dosage: AS DIRECTED EARLY 2009

REACTIONS (2)
  - ANOSMIA [None]
  - NASAL POLYPS [None]
